FAERS Safety Report 4749290-6 (Version None)
Quarter: 2005Q3

REPORT INFORMATION
  Report Type: 
  Country: None (occurrence: None)
  Receive Date: 20050812
  Receipt Date: 20050518
  Transmission Date: 20060218
  Serious: Yes (Other)
  Sender: FDA-Public Use
  Company Number: 405258

PATIENT
  Age: 47 Year
  Sex: Male

DRUGS (2)
  1. PEGASYS [Suspect]
     Indication: HEPATITIS C VIRUS
     Dates: start: 20050513
  2. COPEGUS [Suspect]
     Indication: HEPATITIS C VIRUS
     Dosage: ORAL
     Route: 048
     Dates: start: 20050513

REACTIONS (10)
  - ANAEMIA [None]
  - CHILLS [None]
  - ERYTHEMA [None]
  - HEARING IMPAIRED [None]
  - HEART RATE INCREASED [None]
  - HYPERTENSION [None]
  - INJECTION SITE ERYTHEMA [None]
  - PYREXIA [None]
  - RASH [None]
  - VISION BLURRED [None]
